FAERS Safety Report 5135777-3 (Version None)
Quarter: 2006Q4

REPORT INFORMATION
  Report Type: 
  Country: None (occurrence: None)
  Receive Date: 20061024
  Receipt Date: 20061024
  Transmission Date: 20070319
  Serious: Yes (Hospitalization)
  Sender: FDA-Public Use
  Company Number: None

PATIENT
  Sex: Female
  Weight: 94.8 kg

DRUGS (2)
  1. CETUXIMAB    250MG    BRISTOL MEYER [Suspect]
     Indication: BREAST CANCER METASTATIC
     Dosage: 250MG  OVER 60 MIN   IV DRIP
     Route: 041
     Dates: start: 20060914, end: 20061012
  2. CETUXIMAB    250MG    BRISTOL MEYER [Suspect]
     Indication: BREAST CANCER METASTATIC
     Dosage: 250MG  OVER 60 MIN   IV DRIP
     Route: 041
     Dates: start: 20060914, end: 20061012

REACTIONS (1)
  - OEDEMA PERIPHERAL [None]
